FAERS Safety Report 8990104 (Version 3)
Quarter: 2013Q1

REPORT INFORMATION
  Report Type: Spontaneous
  Country: US (occurrence: US)
  Receive Date: 20121228
  Receipt Date: 20130208
  Transmission Date: 20140127
  Serious: Yes (Hospitalization)
  Sender: FDA-Public Use
  Company Number: US-PFIZER INC-2012332313

PATIENT
  Age: 77 Year
  Sex: Female
  Weight: 77.1 kg

DRUGS (2)
  1. LYRICA [Suspect]
     Indication: DIABETIC NEUROPATHY
     Dosage: 150 MG, 3X/DAY
     Route: 048
     Dates: end: 201212
  2. LYRICA [Suspect]
     Indication: PAIN

REACTIONS (5)
  - Peripheral coldness [Recovered/Resolved]
  - Body temperature increased [Recovered/Resolved]
  - Burning sensation [Recovered/Resolved]
  - Feeling hot [Unknown]
  - Dysphonia [Unknown]
